FAERS Safety Report 9468644 (Version 2)
Quarter: 2013Q3

REPORT INFORMATION
  Report Type: Report from Study
  Country: US (occurrence: US)
  Receive Date: 20130821
  Receipt Date: 20130821
  Transmission Date: 20140515
  Serious: Yes (Hospitalization)
  Sender: FDA-Public Use
  Company Number: US-BRISTOL-MYERS SQUIBB COMPANY-19146174

PATIENT
  Age: 66 Year
  Sex: Male
  Weight: 111 kg

DRUGS (1)
  1. IPILIMUMAB [Suspect]
     Indication: MALIGNANT MELANOMA
     Dosage: LAST DATE:08JUL2013;332MG
     Route: 042
     Dates: start: 20130605

REACTIONS (2)
  - Pleural effusion [Not Recovered/Not Resolved]
  - Dyspnoea [Recovered/Resolved]
